FAERS Safety Report 10103646 (Version 2)
Quarter: 2014Q2

REPORT INFORMATION
  Report Type: Spontaneous
  Country: US (occurrence: US)
  Receive Date: 20140424
  Receipt Date: 20140505
  Transmission Date: 20141212
  Serious: Yes (Hospitalization)
  Sender: FDA-Public Use
  Company Number: US-JNJFOC-20140417376

PATIENT
  Sex: Male
  Weight: 74 kg

DRUGS (4)
  1. IMBRUVICA [Suspect]
     Indication: CHRONIC LYMPHOCYTIC LEUKAEMIA
     Route: 048
     Dates: start: 20140401
  2. LEXAPRO [Concomitant]
     Route: 048
  3. AVODART [Concomitant]
     Route: 048
  4. FLOMAX (MORNIFLUMATE) [Concomitant]
     Route: 048

REACTIONS (6)
  - Sepsis [Unknown]
  - Dehydration [Recovering/Resolving]
  - Clostridium difficile infection [Unknown]
  - Oropharyngeal pain [Recovering/Resolving]
  - Stomatitis [Recovered/Resolved]
  - Dysphagia [Unknown]
